FAERS Safety Report 4715953-1 (Version None)
Quarter: 2005Q3

REPORT INFORMATION
  Report Type: 
  Country: None (occurrence: None)
  Receive Date: 20050718
  Receipt Date: 20050706
  Transmission Date: 20060218
  Serious: Yes (Death)
  Sender: FDA-Public Use
  Company Number: JP-BOEHRINGER INGELHEIM PHARMACEUTICALS, INC.-2005-BP-11272NB

PATIENT
  Age: 83 Year
  Sex: Male

DRUGS (15)
  1. MOBIC [Suspect]
     Route: 048
     Dates: start: 20050414, end: 20050418
  2. NOVASTATAN [Suspect]
     Indication: CEREBRAL INFARCTION
     Route: 042
     Dates: start: 20050409, end: 20050413
  3. RADICUT [Suspect]
     Indication: CEREBRAL INFARCTION
     Route: 042
     Dates: start: 20050406, end: 20050407
  4. BLOPRESS [Suspect]
     Route: 048
     Dates: start: 20050407, end: 20050418
  5. SEROQUEL [Suspect]
     Route: 048
     Dates: start: 20050407, end: 20050418
  6. MYSLEE [Suspect]
     Route: 048
     Dates: start: 20050407, end: 20050418
  7. LOXONIN [Suspect]
     Route: 048
     Dates: start: 20050414, end: 20050418
  8. SOLITA-T NO. 3 [Concomitant]
     Indication: MEDICATION DILUTION
     Route: 042
     Dates: start: 20050409, end: 20050413
  9. LANIRAPID [Concomitant]
     Route: 048
     Dates: end: 20050418
  10. ISOSORBIDE MONONITRATE [Concomitant]
     Route: 048
     Dates: end: 20050418
  11. ASPIRIN [Concomitant]
     Route: 048
     Dates: end: 20050418
  12. WARFARIN [Concomitant]
     Route: 048
     Dates: end: 20050418
  13. GASTER D [Concomitant]
     Route: 048
     Dates: end: 20050418
  14. LASIX [Concomitant]
     Route: 048
  15. DEXTROSE [Concomitant]
     Indication: MEDICATION DILUTION
     Route: 042
     Dates: start: 20050406, end: 20050407

REACTIONS (2)
  - HEPATITIS [None]
  - SEPSIS [None]
